FAERS Safety Report 7068891-6 (Version None)
Quarter: 2010Q4

REPORT INFORMATION
  Report Type: 
  Country: None (occurrence: None)
  Receive Date: 20101020
  Receipt Date: 20101008
  Transmission Date: 20110411
  Serious: Yes (Other)
  Sender: FDA-Public Use
  Company Number: 2010JP005982

PATIENT
  Sex: Male

DRUGS (7)
  1. VESICARE [Suspect]
     Indication: POLLAKIURIA
     Dosage: ORAL
     Route: 048
     Dates: start: 20071225
  2. MAGNESIUM OXIDE (MAGNESIUM OXIDE) [Concomitant]
  3. GANATON (ITOPRIDE HYDROCHLORIDE) [Concomitant]
  4. GASMOTIN (MOSAPRIDE CITRATE) [Concomitant]
  5. HANGEKOUBOKUTOU (HERBAL EXTRACT NOS) [Concomitant]
  6. CERNILTON (CERNITIN GBX, CERNITIN T60) [Concomitant]
  7. AZUNOL (AZULENE SODIUM SULFONATE) [Concomitant]

REACTIONS (6)
  - CHILLS [None]
  - CONVULSION [None]
  - FEELING ABNORMAL [None]
  - HYPOAESTHESIA [None]
  - HYPOAESTHESIA ORAL [None]
  - SLUGGISHNESS [None]
